FAERS Safety Report 23166980 (Version 1)
Quarter: 2023Q4

REPORT INFORMATION
  Report Type: Report from Study
  Country: CA (occurrence: None)
  Receive Date: 20231109
  Receipt Date: 20231109
  Transmission Date: 20240110
  Serious: Yes (Other)
  Sender: FDA-Public Use
  Company Number: 2023A210834

PATIENT
  Sex: Male

DRUGS (1)
  1. IMFINZI [Suspect]
     Active Substance: DURVALUMAB
     Indication: Metastases to biliary tract
     Route: 042
     Dates: start: 20230704

REACTIONS (3)
  - Diarrhoea [Unknown]
  - Immune-mediated enterocolitis [Unknown]
  - Toxicity to various agents [Unknown]
